FAERS Safety Report 6837135-X (Version None)
Quarter: 2010Q3

REPORT INFORMATION
  Report Type: 
  Country: None (occurrence: None)
  Receive Date: 20100713
  Receipt Date: 20070507
  Transmission Date: 20110219
  Serious: No
  Sender: FDA-Public Use
  Company Number: US-PFIZER INC-2007036828

PATIENT
  Age: 62 Year
  Sex: Male

DRUGS (14)
  1. CHANTIX [Suspect]
     Indication: SMOKING CESSATION THERAPY
     Dates: start: 20070401
  2. NEURONTIN [Suspect]
     Indication: ESSENTIAL TREMOR
  3. TOPROL-XL [Concomitant]
  4. HYDROCHLOROTHIAZIDE [Concomitant]
  5. NORVASC [Concomitant]
  6. VALSARTAN [Concomitant]
  7. PAXIL CR [Concomitant]
  8. BENTYL [Concomitant]
  9. MULTI-VITAMINS [Concomitant]
  10. POTASSIUM [Concomitant]
  11. TRICOR [Concomitant]
  12. KLONOPIN [Concomitant]
  13. PROTONIX [Concomitant]
  14. NASONEX [Concomitant]

REACTIONS (8)
  - ABDOMINAL TENDERNESS [None]
  - COLD SWEAT [None]
  - DISORIENTATION [None]
  - DIZZINESS [None]
  - DYSGEUSIA [None]
  - MALAISE [None]
  - MUSCLE SPASMS [None]
  - PAIN [None]
